FAERS Safety Report 13978687 (Version 1)
Quarter: 2017Q3

REPORT INFORMATION
  Report Type: Spontaneous
  Country: US (occurrence: US)
  Receive Date: 20170915
  Receipt Date: 20170915
  Transmission Date: 20171128
  Serious: Yes (Life-Threatening, Other)
  Sender: FDA-Public Use
  Company Number: US-BAYER-2017-169945

PATIENT
  Age: 69 Year
  Sex: Male

DRUGS (4)
  1. ACETYLSALICYLIC ACID({=100 MG) [Suspect]
     Active Substance: ASPIRIN
  2. HEPARIN [Interacting]
     Active Substance: HEPARIN SODIUM
     Indication: THROMBOLYSIS
  3. TICAGRELOR. [Interacting]
     Active Substance: TICAGRELOR
  4. TISSUE PLASMINOGEN ACTIVATOR [Interacting]
     Active Substance: ALTEPLASE
     Indication: THROMBOLYSIS

REACTIONS (7)
  - Mental impairment [None]
  - Intracranial pressure increased [None]
  - Haemorrhage intracranial [None]
  - Headache [None]
  - Drug administration error [None]
  - Hypertension [None]
  - Labelled drug-drug interaction medication error [None]
